FAERS Safety Report 4620397-7 (Version None)
Quarter: 2005Q1

REPORT INFORMATION
  Report Type: 
  Country: None (occurrence: None)
  Receive Date: 20050324
  Receipt Date: 20050311
  Transmission Date: 20050727
  Serious: Yes (Hospitalization, Other)
  Sender: FDA-Public Use
  Company Number: 2005043991

PATIENT
  Sex: Male

DRUGS (1)
  1. BEXTRA [Suspect]
     Indication: ILL-DEFINED DISORDER
     Dosage: UNKNOWN
     Route: 065

REACTIONS (2)
  - CORONARY ARTERY OCCLUSION [None]
  - MYOCARDIAL INFARCTION [None]
